FAERS Safety Report 25529010 (Version 3)
Quarter: 2025Q3

REPORT INFORMATION
  Report Type: Spontaneous
  Country: CA (occurrence: CA)
  Receive Date: 20250708
  Receipt Date: 20250904
  Transmission Date: 20251021
  Serious: Yes (Other)
  Sender: TAKEDA
  Company Number: CA-TAKEDA-2025TUS060788

PATIENT

DRUGS (4)
  1. MESALAMINE [Suspect]
     Active Substance: MESALAMINE
     Indication: Product used for unknown indication
  2. MESALAMINE [Suspect]
     Active Substance: MESALAMINE
  3. MESALAMINE [Suspect]
     Active Substance: MESALAMINE
  4. MESALAMINE [Suspect]
     Active Substance: MESALAMINE

REACTIONS (2)
  - Product contamination microbial [Unknown]
  - Gastrointestinal pain [Unknown]
